FAERS Safety Report 20642188 (Version 1)
Quarter: 2022Q1

REPORT INFORMATION
  Report Type: Spontaneous
  Country: DE (occurrence: DE)
  Receive Date: 20220328
  Receipt Date: 20220328
  Transmission Date: 20220423
  Serious: Yes (Death, Other)
  Sender: FDA-Public Use
  Company Number: DE-PFIZER INC-202200420972

PATIENT
  Age: 45 Year
  Sex: Female

DRUGS (2)
  1. BEVACIZUMAB [Suspect]
     Active Substance: BEVACIZUMAB
     Indication: Product used for unknown indication
     Dosage: 3 CYCLES
     Route: 065
     Dates: start: 202105, end: 202107
  2. TAXOL [Suspect]
     Active Substance: PACLITAXEL
     Indication: Product used for unknown indication
     Dosage: 3 CYCLES
     Route: 065
     Dates: start: 202105, end: 202107

REACTIONS (5)
  - Metastases to kidney [Fatal]
  - Metastases to lymph nodes [Fatal]
  - Metastases to liver [Fatal]
  - Metastases to bone [Fatal]
  - Malignant neoplasm progression [Fatal]

NARRATIVE: CASE EVENT DATE: 20210701
